FAERS Safety Report 17650886 (Version 1)
Quarter: 2020Q2

REPORT INFORMATION
  Report Type: Report from Study
  Country: IN (occurrence: IN)
  Receive Date: 20200409
  Receipt Date: 20200409
  Transmission Date: 20200713
  Serious: Yes (Death)
  Sender: FDA-Public Use
  Company Number: NVSC2019IN076382

PATIENT
  Age: 58 Year
  Sex: Female

DRUGS (2)
  1. VYMADA [Suspect]
     Active Substance: SACUBITRIL\VALSARTAN
     Indication: CARDIAC FAILURE
  2. VYMADA [Suspect]
     Active Substance: SACUBITRIL\VALSARTAN
     Indication: CARDIAC FAILURE CONGESTIVE
     Dosage: 0.25 DF (50 MG), BID
     Route: 065
     Dates: start: 20191115, end: 20200206

REACTIONS (2)
  - Wrong technique in product usage process [Unknown]
  - Sudden death [Fatal]

NARRATIVE: CASE EVENT DATE: 20191115
